FAERS Safety Report 5153397-1 (Version None)
Quarter: 2006Q4

REPORT INFORMATION
  Report Type: 
  Country: None (occurrence: None)
  Receive Date: 20061114
  Receipt Date: 20061027
  Transmission Date: 20070319
  Serious: No
  Sender: FDA-Public Use
  Company Number: 2006-149742-NL

PATIENT
  Sex: Female

DRUGS (4)
  1. FOLLITROPIN BETA [Suspect]
  2. CHORIONIC GONADOTROPIN [Suspect]
     Dosage: 10000, IU,
  3. UROFOLLITROPIN [Suspect]
     Dosage: DF,
  4. BUSERELIN ACETATE [Suspect]
     Dosage: DF,

REACTIONS (2)
  - DRUG EXPOSURE DURING PREGNANCY [None]
  - ECTOPIC PREGNANCY [None]
